FAERS Safety Report 7042826-4 (Version None)
Quarter: 2010Q4

REPORT INFORMATION
  Report Type: 
  Country: None (occurrence: None)
  Receive Date: 20101013
  Receipt Date: 20090731
  Transmission Date: 20110411
  Serious: No
  Sender: FDA-Public Use
  Company Number: US-ASTRAZENECA-2009UW17351

PATIENT
  Age: 62 Year
  Sex: Male

DRUGS (5)
  1. SYMBICORT [Suspect]
     Dosage: 160 UG
     Route: 055
     Dates: start: 20090614
  2. SERTRALINE HYDROCHLORIDE [Concomitant]
  3. AMLODIPINE [Concomitant]
  4. COZAAR [Concomitant]
  5. ISOSORBIDE [Concomitant]

REACTIONS (1)
  - CHEST DISCOMFORT [None]
